FAERS Safety Report 9719692 (Version 1)
Quarter: 2013Q4

REPORT INFORMATION
  Report Type: Spontaneous
  Country: US (occurrence: US)
  Receive Date: 20131128
  Receipt Date: 20131128
  Transmission Date: 20140711
  Serious: No
  Sender: FDA-Public Use
  Company Number: US-009507513-1311USA008900

PATIENT
  Age: 26 Year
  Sex: Female
  Weight: 53.52 kg

DRUGS (1)
  1. NEXPLANON [Suspect]
     Indication: CONTRACEPTION
     Dosage: UNK, 3 YEAR IMPLANT
     Route: 059
     Dates: start: 20131111

REACTIONS (5)
  - Swelling [Unknown]
  - Erythema [Unknown]
  - Pruritus [Unknown]
  - Pain [Unknown]
  - Weight increased [Unknown]
